FAERS Safety Report 8834301 (Version 2)
Quarter: 2013Q2

REPORT INFORMATION
  Report Type: Spontaneous
  Country: JP (occurrence: JP)
  Receive Date: 20121010
  Receipt Date: 20130409
  Transmission Date: 20140414
  Serious: Yes (Hospitalization)
  Sender: FDA-Public Use
  Company Number: PHHY2012JP088035

PATIENT
  Age: 81 Year
  Sex: Male

DRUGS (1)
  1. HYDROXYZINE [Suspect]

REACTIONS (10)
  - Acute generalised exanthematous pustulosis [Recovered/Resolved]
  - Rash generalised [Recovered/Resolved]
  - Pruritus generalised [Recovered/Resolved]
  - Skin exfoliation [Recovered/Resolved]
  - Papule [Recovered/Resolved]
  - Pyrexia [Recovered/Resolved]
  - Subcorneal pustular dermatosis [Recovered/Resolved]
  - Psoriasis [Not Recovered/Not Resolved]
  - Pain in extremity [Recovered/Resolved]
  - Back pain [Recovered/Resolved]
